FAERS Safety Report 9414810 (Version 1)
Quarter: 2013Q3

REPORT INFORMATION
  Report Type: Spontaneous
  Country: US (occurrence: US)
  Receive Date: 20130723
  Receipt Date: 20130723
  Transmission Date: 20140515
  Serious: Yes (Hospitalization)
  Sender: FDA-Public Use
  Company Number: US-TEVA-409685USA

PATIENT
  Age: 69 Year
  Sex: Female

DRUGS (9)
  1. BACLOFEN [Suspect]
     Indication: NECK PAIN
     Dosage: 20 MILLIGRAM DAILY;
     Dates: start: 201210, end: 201304
  2. SUDAFED [Concomitant]
  3. DELSYM [Concomitant]
  4. ZINC [Concomitant]
  5. VITAMIN C [Concomitant]
  6. NEUPOGEN [Concomitant]
  7. LIPITOR [Concomitant]
  8. LEXAPRO [Concomitant]
  9. ATENOLOL [Concomitant]

REACTIONS (2)
  - Transient global amnesia [Recovered/Resolved]
  - Amnesia [Unknown]
